FAERS Safety Report 8429152-3 (Version None)
Quarter: 2012Q2

REPORT INFORMATION
  Report Type: 
  Country: None (occurrence: None)
  Receive Date: 20120612
  Receipt Date: 20120604
  Transmission Date: 20120825
  Serious: Yes (Life-Threatening, Other)
  Sender: FDA-Public Use
  Company Number: FR-JNJFOC-20120213336

PATIENT
  Sex: Male

DRUGS (2)
  1. CYCLOSPORINE [Suspect]
     Indication: PSORIASIS
     Route: 048
     Dates: end: 20100101
  2. STELARA [Suspect]
     Indication: PSORIASIS
     Route: 058
     Dates: start: 20110101, end: 20111201

REACTIONS (3)
  - BASAL CELL CARCINOMA [None]
  - TONSIL CANCER [None]
  - METASTASES TO LYMPH NODES [None]
